FAERS Safety Report 6892938-0 (Version None)
Quarter: 2010Q3

REPORT INFORMATION
  Report Type: 
  Country: None (occurrence: None)
  Receive Date: 20100731
  Receipt Date: 20081110
  Transmission Date: 20110219
  Serious: Yes (Other)
  Sender: FDA-Public Use
  Company Number: US-PFIZER INC-2005112873

PATIENT
  Sex: Female
  Weight: 65 kg

DRUGS (16)
  1. NEURONTIN [Suspect]
     Indication: FIBROMYALGIA
     Route: 048
  2. NEURONTIN [Suspect]
     Indication: SYSTEMIC LUPUS ERYTHEMATOSUS
  3. NEURONTIN [Suspect]
     Indication: DRUG HYPERSENSITIVITY
  4. NEURONTIN [Suspect]
     Indication: CHRONIC FATIGUE SYNDROME
  5. GABAPENTIN [Suspect]
     Indication: DRUG HYPERSENSITIVITY
     Dates: start: 20060101, end: 20080709
  6. GABAPENTIN [Suspect]
     Indication: CHRONIC FATIGUE SYNDROME
  7. THYROID TAB [Concomitant]
     Route: 048
  8. VERAPAMIL [Concomitant]
     Route: 048
  9. ALL OTHER THERAPEUTIC PRODUCTS [Concomitant]
     Route: 048
  10. ESTROGENS SOL/INJ [Concomitant]
     Route: 048
  11. ZANTAC [Concomitant]
     Route: 048
  12. BENICAR [Concomitant]
     Route: 048
  13. PROVERA [Concomitant]
     Route: 048
  14. CLIMARA [Concomitant]
     Route: 062
  15. TESTRED [Concomitant]
     Route: 048
  16. PROGESTERONE [Concomitant]
     Route: 065

REACTIONS (17)
  - ABDOMINAL PAIN UPPER [None]
  - APTYALISM [None]
  - CONVULSION [None]
  - DRUG DISPENSING ERROR [None]
  - DRUG INEFFECTIVE [None]
  - DRY EYE [None]
  - DRY MOUTH [None]
  - DYSPHAGIA [None]
  - FACIAL NERVE DISORDER [None]
  - FATIGUE [None]
  - HYPERTENSION [None]
  - INSOMNIA [None]
  - NASAL DRYNESS [None]
  - NEUROLOGICAL SYMPTOM [None]
  - PAIN [None]
  - PARAESTHESIA [None]
  - VISION BLURRED [None]
